FAERS Safety Report 23844420 (Version 2)
Quarter: 2024Q2

REPORT INFORMATION
  Report Type: Report from Study
  Country: JP (occurrence: JP)
  Receive Date: 20240510
  Receipt Date: 20240515
  Transmission Date: 20240717
  Serious: Yes (Death, Other)
  Sender: FDA-Public Use
  Company Number: JP-MSD-2405JPN000100JAA

PATIENT
  Age: 80 Year
  Sex: Male
  Weight: 54 kg

DRUGS (3)
  1. POSACONAZOLE [Suspect]
     Active Substance: POSACONAZOLE
     Indication: Aspergillus infection
     Dosage: 300 MILLIGRAM, QD
     Route: 048
     Dates: start: 20240126, end: 20240307
  2. SULFAMETHOXAZOLE\TRIMETHOPRIM [Concomitant]
     Active Substance: SULFAMETHOXAZOLE\TRIMETHOPRIM
     Dosage: UNK
     Route: 048
     Dates: end: 20240306
  3. VALACYCLOVIR HYDROCHLORIDE [Concomitant]
     Active Substance: VALACYCLOVIR HYDROCHLORIDE
     Dosage: UNK
     Route: 048
     Dates: end: 20240306

REACTIONS (2)
  - Diffuse large B-cell lymphoma [Fatal]
  - Product use issue [Unknown]

NARRATIVE: CASE EVENT DATE: 20240126
